FAERS Safety Report 6126481-3 (Version None)
Quarter: 2009Q1

REPORT INFORMATION
  Report Type: 
  Country: None (occurrence: None)
  Receive Date: 20090320
  Receipt Date: 20090310
  Transmission Date: 20090719
  Serious: Yes (Hospitalization)
  Sender: FDA-Public Use
  Company Number: US-PFIZER INC-2009181380

PATIENT
  Sex: Female
  Weight: 62 kg

DRUGS (7)
  1. IDAMYCIN [Suspect]
     Indication: MYELODYSPLASTIC SYNDROME
     Dosage: ONCE
     Dates: start: 20080128
  2. CYTOSAR-U [Suspect]
     Indication: MYELODYSPLASTIC SYNDROME
     Dosage: ONCE
     Dates: start: 20080128
  3. REBIF [Suspect]
     Indication: MULTIPLE SCLEROSIS
     Dosage: 8.8 UG, 3 IN 1 WEEKS
     Route: 058
     Dates: start: 20071109, end: 20071101
  4. REBIF [Suspect]
     Dosage: 22 UG, 3 IN 1 WEEKS
     Route: 058
     Dates: start: 20071101, end: 20071127
  5. PROVIGIL [Concomitant]
     Indication: FATIGUE
     Dosage: UNK
  6. CLONAZEPAM [Concomitant]
     Indication: SLEEP DISORDER
     Dosage: UNK
  7. PROZAC [Concomitant]
     Indication: DEPRESSION
     Dosage: UNK

REACTIONS (4)
  - CONTUSION [None]
  - FEBRILE NEUTROPENIA [None]
  - INFUSION SITE INFECTION [None]
  - MYELODYSPLASTIC SYNDROME [None]
